FAERS Safety Report 8302084-7 (Version None)
Quarter: 2012Q2

REPORT INFORMATION
  Report Type: 
  Country: None (occurrence: None)
  Receive Date: 20120420
  Receipt Date: 20120410
  Transmission Date: 20120825
  Serious: Yes (Hospitalization, Disabling, Other)
  Sender: FDA-Public Use
  Company Number: US-MERCK-1201USA00344

PATIENT
  Age: 54 Year
  Sex: Female

DRUGS (2)
  1. FOSAMAX [Suspect]
     Indication: OSTEOPOROSIS
     Route: 048
     Dates: start: 20020901, end: 20070814
  2. FOSAMAX PLUS D [Suspect]
     Indication: OSTEOPENIA
     Route: 048
     Dates: start: 20070815, end: 20100121

REACTIONS (15)
  - HYPERTENSION [None]
  - UTERINE LEIOMYOMA [None]
  - GALLBLADDER DISORDER [None]
  - GLAUCOMA [None]
  - ABDOMINAL HERNIA [None]
  - LIPOMA [None]
  - BREAST DISORDER [None]
  - TOOTHACHE [None]
  - FEMUR FRACTURE [None]
  - HYDROURETER [None]
  - BLOOD CHOLESTEROL INCREASED [None]
  - TYPE 2 DIABETES MELLITUS [None]
  - CALCULUS URETERIC [None]
  - HYDRONEPHROSIS [None]
  - TOOTH DISORDER [None]
